FAERS Safety Report 20512875 (Version 1)
Quarter: 2022Q1

REPORT INFORMATION
  Report Type: Spontaneous
  Country: US (occurrence: US)
  Receive Date: 20220224
  Receipt Date: 20220224
  Transmission Date: 20220423
  Serious: Yes (Other)
  Sender: FDA-Public Use
  Company Number: US-GILEAD-2022-0570819

PATIENT
  Age: 78 Year
  Sex: Female

DRUGS (1)
  1. YESCARTA [Suspect]
     Active Substance: AXICABTAGENE CILOLEUCEL
     Indication: Diffuse large B-cell lymphoma
     Dosage: UNK
     Route: 065
     Dates: start: 20200512

REACTIONS (6)
  - Myelodysplastic syndrome [Not Recovered/Not Resolved]
  - Clostridium difficile colitis [Unknown]
  - Infected seroma [Not Recovered/Not Resolved]
  - Pneumonia [Unknown]
  - Neutropenia [Not Recovered/Not Resolved]
  - Thrombocytopenia [Unknown]

NARRATIVE: CASE EVENT DATE: 20220209
